FAERS Safety Report 23118300 (Version 3)
Quarter: 2023Q4

REPORT INFORMATION
  Report Type: Report from Study
  Country: JP (occurrence: JP)
  Receive Date: 20231028
  Receipt Date: 20231206
  Transmission Date: 20240109
  Serious: Yes (Death, Hospitalization, Other)
  Sender: FDA-Public Use
  Company Number: JP-TAKEDA-2023TJP014223

PATIENT
  Age: 68 Year
  Sex: Male

DRUGS (1)
  1. LEUPROLIDE ACETATE [Suspect]
     Active Substance: LEUPROLIDE ACETATE
     Indication: Bulbospinal muscular atrophy congenital
     Dosage: 11.25 MILLIGRAM, Q3MONTHS
     Route: 058
     Dates: start: 20190613, end: 20230608

REACTIONS (3)
  - Respiratory failure [Fatal]
  - Hypophagia [Fatal]
  - Dysphagia [Fatal]

NARRATIVE: CASE EVENT DATE: 20230101
